APPROVED DRUG PRODUCT: KETAMINE HYDROCHLORIDE
Active Ingredient: KETAMINE HYDROCHLORIDE
Strength: EQ 100MG BASE/10ML (EQ 10MG BASE/ML)
Dosage Form/Route: SOLUTION;INTRAMUSCULAR, INTRAVENOUS
Application: A219684 | Product #001
Applicant: BAXTER HEALTHCARE CORP
Approved: Sep 17, 2025 | RLD: No | RS: Yes | Type: RX